FAERS Safety Report 7316436-5 (Version None)
Quarter: 2011Q1

REPORT INFORMATION
  Report Type: 
  Country: None (occurrence: None)
  Receive Date: 20110225
  Receipt Date: 20110221
  Transmission Date: 20110831
  Serious: Yes (Hospitalization)
  Sender: FDA-Public Use
  Company Number: US-MERCK-1102USA02390

PATIENT
  Age: 55 Year
  Sex: Male
  Weight: 116 kg

DRUGS (7)
  1. PRINIVIL [Suspect]
     Route: 048
  2. ATAZANAVIR [Concomitant]
     Route: 065
  3. TESTOSTERONE [Concomitant]
     Route: 065
  4. ISENTRESS [Suspect]
     Route: 048
  5. IBUPROFEN [Concomitant]
     Route: 065
  6. VICODIN [Concomitant]
     Route: 048
  7. COCAINE [Suspect]
     Route: 065

REACTIONS (2)
  - SUICIDAL IDEATION [None]
  - PARANOIA [None]
